FAERS Safety Report 23167668 (Version 4)
Quarter: 2024Q1

REPORT INFORMATION
  Report Type: Spontaneous
  Country: US (occurrence: US)
  Receive Date: 20231109
  Receipt Date: 20240328
  Transmission Date: 20240409
  Serious: Yes (Hospitalization, Other)
  Sender: FDA-Public Use
  Company Number: US-INCYTE CORPORATION-2023IN011669

PATIENT

DRUGS (31)
  1. JAKAFI [Suspect]
     Active Substance: RUXOLITINIB
     Indication: Chronic graft versus host disease in liver
     Dosage: UNK
     Route: 065
     Dates: start: 20230608
  2. JAKAFI [Suspect]
     Active Substance: RUXOLITINIB
     Indication: Chronic graft versus host disease in eye
  3. JAKAFI [Suspect]
     Active Substance: RUXOLITINIB
     Indication: Chronic graft versus host disease oral
  4. JAKAFI [Suspect]
     Active Substance: RUXOLITINIB
     Indication: Chronic graft versus host disease in skin
  5. JAKAFI [Suspect]
     Active Substance: RUXOLITINIB
     Indication: Chronic graft versus host disease in intestine
  6. JAKAFI [Suspect]
     Active Substance: RUXOLITINIB
     Indication: Chronic graft versus host disease
  7. AXATILIMAB [Suspect]
     Active Substance: AXATILIMAB
     Indication: Chronic graft versus host disease
     Dosage: 0.3 MILLIGRAM/KILOGRAM
     Route: 042
     Dates: start: 20231219
  8. PREDNISONE [Concomitant]
     Active Substance: PREDNISONE
     Indication: Chronic graft versus host disease in liver
     Dosage: UNK
     Route: 065
  9. PREDNISONE [Concomitant]
     Active Substance: PREDNISONE
     Indication: Chronic graft versus host disease in eye
  10. PREDNISONE [Concomitant]
     Active Substance: PREDNISONE
     Indication: Chronic graft versus host disease oral
  11. PREDNISONE [Concomitant]
     Active Substance: PREDNISONE
     Indication: Chronic graft versus host disease in skin
  12. PREDNISONE [Concomitant]
     Active Substance: PREDNISONE
     Indication: Chronic graft versus host disease in intestine
  13. PREDNISONE [Concomitant]
     Active Substance: PREDNISONE
     Indication: Chronic graft versus host disease
  14. TACROLIMUS [Concomitant]
     Active Substance: TACROLIMUS
     Indication: Chronic graft versus host disease in liver
     Dosage: UNK
     Route: 065
  15. TACROLIMUS [Concomitant]
     Active Substance: TACROLIMUS
     Indication: Chronic graft versus host disease in eye
  16. TACROLIMUS [Concomitant]
     Active Substance: TACROLIMUS
     Indication: Chronic graft versus host disease oral
  17. TACROLIMUS [Concomitant]
     Active Substance: TACROLIMUS
     Indication: Chronic graft versus host disease in skin
  18. TACROLIMUS [Concomitant]
     Active Substance: TACROLIMUS
     Indication: Chronic graft versus host disease in intestine
  19. TACROLIMUS [Concomitant]
     Active Substance: TACROLIMUS
     Indication: Chronic graft versus host disease
  20. REZUROCK [Concomitant]
     Active Substance: BELUMOSUDIL
     Indication: Chronic graft versus host disease in liver
     Dosage: UNK
     Route: 065
     Dates: start: 20230203
  21. REZUROCK [Concomitant]
     Active Substance: BELUMOSUDIL
     Indication: Chronic graft versus host disease in eye
  22. REZUROCK [Concomitant]
     Active Substance: BELUMOSUDIL
     Indication: Chronic graft versus host disease oral
  23. REZUROCK [Concomitant]
     Active Substance: BELUMOSUDIL
     Indication: Chronic graft versus host disease in skin
  24. REZUROCK [Concomitant]
     Active Substance: BELUMOSUDIL
     Indication: Chronic graft versus host disease in intestine
  25. REZUROCK [Concomitant]
     Active Substance: BELUMOSUDIL
     Indication: Chronic graft versus host disease
  26. ACYCLOVIR [Concomitant]
     Active Substance: ACYCLOVIR
     Indication: Product used for unknown indication
     Dosage: UNK
     Route: 065
     Dates: start: 20230426
  27. BACTRIM [Concomitant]
     Active Substance: SULFAMETHOXAZOLE\TRIMETHOPRIM
     Indication: Product used for unknown indication
     Dosage: UNK
     Route: 065
     Dates: start: 20231113
  28. FLUCONAZOLE [Concomitant]
     Active Substance: FLUCONAZOLE
     Indication: Product used for unknown indication
     Dosage: UNK
     Route: 065
     Dates: start: 20231103
  29. LEVOTHYROXINE [Concomitant]
     Active Substance: LEVOTHYROXINE\LEVOTHYROXINE SODIUM
     Indication: Product used for unknown indication
     Dosage: UNK
     Route: 065
     Dates: start: 20220907
  30. GABAPENTIN [Concomitant]
     Active Substance: GABAPENTIN
     Indication: Product used for unknown indication
     Dosage: UNK
     Route: 065
     Dates: start: 20230920
  31. ROSUVASTATIN [Concomitant]
     Active Substance: ROSUVASTATIN
     Indication: Product used for unknown indication
     Dosage: UNK
     Route: 065
     Dates: start: 20210930

REACTIONS (12)
  - Osteomyelitis [Not Recovered/Not Resolved]
  - Immunosuppression [Unknown]
  - Atrial fibrillation [Unknown]
  - Type 2 diabetes mellitus [Unknown]
  - Hypothyroidism [Unknown]
  - Hepatic cirrhosis [Unknown]
  - Neuropathy peripheral [Unknown]
  - Staphylococcal bacteraemia [Unknown]
  - Chronic graft versus host disease in skin [Unknown]
  - Hyperlipidaemia [Unknown]
  - Disease progression [Unknown]
  - Hypertension [Unknown]

NARRATIVE: CASE EVENT DATE: 20231017
